FAERS Safety Report 9894139 (Version 1)
Quarter: 2014Q1

REPORT INFORMATION
  Report Type: Spontaneous
  Country: US (occurrence: US)
  Receive Date: 20140213
  Receipt Date: 20140213
  Transmission Date: 20141002
  Serious: No
  Sender: FDA-Public Use
  Company Number: US-PFIZER INC-2014036045

PATIENT
  Sex: Female

DRUGS (3)
  1. XANAX [Suspect]
     Dosage: UNK
  2. KLONOPIN [Suspect]
     Dosage: UNK
  3. LITHIUM [Suspect]
     Dosage: UNK

REACTIONS (3)
  - Dizziness [Unknown]
  - Depression [Unknown]
  - Fibromyalgia [Unknown]
